FAERS Safety Report 19078298 (Version 2)
Quarter: 2021Q2

REPORT INFORMATION
  Report Type: Spontaneous
  Country: US (occurrence: US)
  Receive Date: 20210331
  Receipt Date: 20210406
  Transmission Date: 20210717
  Serious: No
  Sender: FDA-Public Use
  Company Number: US-TEVA-2021-US-1894679

PATIENT

DRUGS (1)
  1. ESCITALOPRAM OXALATE TEVA [Suspect]
     Active Substance: ESCITALOPRAM OXALATE
     Route: 065

REACTIONS (4)
  - Confusional state [Unknown]
  - Ear pain [Unknown]
  - Headache [Unknown]
  - Mental status changes [Unknown]
